FAERS Safety Report 5267966-1 (Version None)
Quarter: 2007Q1

REPORT INFORMATION
  Report Type: 
  Country: None (occurrence: None)
  Receive Date: 20061212
  Receipt Date: 20060801
  Transmission Date: 20070707
  Serious: No
  Sender: FDA-Public Use
  Company Number: 06H-163-0309513-00

PATIENT
  Age: 92 Year
  Sex: Male

DRUGS (1)
  1. DOBUTAMINE IN DEXTROSE 5% [Suspect]
     Indication: CARDIAC STRESS TEST
     Dosage: INTRAVENOUS
     Route: 042
     Dates: start: 20060726, end: 20060726

REACTIONS (1)
  - VENTRICULAR TACHYCARDIA [None]
